FAERS Safety Report 5938153-6 (Version None)
Quarter: 2008Q4

REPORT INFORMATION
  Report Type: 
  Country: None (occurrence: None)
  Receive Date: 20081031
  Receipt Date: 20081024
  Transmission Date: 20090506
  Serious: Yes (Hospitalization)
  Sender: FDA-Public Use
  Company Number: US-B.I. PHARMACEUTICALS,INC./RIDGEFIELD-2008-BP-16327BP

PATIENT
  Age: 69 Year
  Sex: Male

DRUGS (9)
  1. SPIRIVA [Suspect]
     Indication: CHRONIC OBSTRUCTIVE PULMONARY DISEASE
     Dosage: 18MCG
     Route: 055
     Dates: start: 20050101, end: 20081024
  2. PREDNISONE [Concomitant]
  3. ADVAIR DISKUS 100/50 [Concomitant]
     Indication: CHRONIC OBSTRUCTIVE PULMONARY DISEASE
  4. COUMADIN [Concomitant]
     Indication: ANTICOAGULANT THERAPY
  5. LISINOPRIL [Concomitant]
  6. VERAPAMIL [Concomitant]
  7. TERAZOSIN HCL [Concomitant]
  8. GLIMPRIDE [Concomitant]
     Indication: DIABETES MELLITUS
  9. METFORMIN HCL [Concomitant]
     Indication: DIABETES MELLITUS

REACTIONS (2)
  - EXTRASYSTOLES [None]
  - URINARY TRACT INFECTION [None]
